FAERS Safety Report 12011035 (Version 4)
Quarter: 2016Q4

REPORT INFORMATION
  Report Type: Report from Study
  Country: DE (occurrence: DE)
  Receive Date: 20160205
  Receipt Date: 20161005
  Transmission Date: 20170206
  Serious: Yes (Hospitalization, Other)
  Sender: FDA-Public Use
  Company Number: DE-BIOGEN-2015BI130974

PATIENT
  Age: 51 Year
  Sex: Male

DRUGS (11)
  1. L-THYROXINE [Concomitant]
     Active Substance: LEVOTHYROXINE
     Indication: HYPOTHYROIDISM
     Route: 065
     Dates: start: 20101013
  2. GABAPENTIN. [Concomitant]
     Active Substance: GABAPENTIN
     Indication: NEURALGIA
     Route: 048
     Dates: start: 20110316
  3. FESOTERODINE [Concomitant]
     Active Substance: FESOTERODINE
     Indication: URINARY INCONTINENCE
     Route: 048
     Dates: start: 20130703
  4. VALORON [Concomitant]
     Active Substance: TILIDINE HYDROCHLORIDE
     Indication: PAIN
     Route: 048
     Dates: start: 20130820
  5. RISPERIDONE. [Concomitant]
     Active Substance: RISPERIDONE
     Indication: PARANOIA
  6. DULOXETINE. [Concomitant]
     Active Substance: DULOXETINE
     Indication: DEPRESSIVE DELUSION
     Route: 048
     Dates: start: 20150121
  7. PREGABALIN. [Concomitant]
     Active Substance: PREGABALIN
     Indication: NEURALGIA
     Route: 048
     Dates: start: 20120110
  8. FAMPRIDINE [Concomitant]
     Active Substance: DALFAMPRIDINE
     Indication: PRODUCT USED FOR UNKNOWN INDICATION
     Route: 048
     Dates: start: 20140424
  9. TYSABRI [Suspect]
     Active Substance: NATALIZUMAB
     Indication: MULTIPLE SCLEROSIS
     Route: 042
     Dates: start: 20130104, end: 20150916
  10. RISPERIDONE. [Concomitant]
     Active Substance: RISPERIDONE
     Indication: DEPRESSIVE DELUSION
     Route: 048
     Dates: start: 20131011
  11. TOLPERISONE [Concomitant]
     Active Substance: TOLPERISONE
     Indication: MUSCLE SPASTICITY
     Route: 065
     Dates: start: 20120619

REACTIONS (2)
  - Progressive multifocal leukoencephalopathy [Recovered/Resolved with Sequelae]
  - Immune reconstitution inflammatory syndrome [Recovered/Resolved with Sequelae]

NARRATIVE: CASE EVENT DATE: 20150916
